FAERS Safety Report 11310456 (Version 1)
Quarter: 2015Q3

REPORT INFORMATION
  Report Type: Report from Study
  Country: US (occurrence: US)
  Receive Date: 20150724
  Receipt Date: 20150724
  Transmission Date: 20151125
  Serious: Yes (Other)
  Sender: FDA-Public Use
  Company Number: PHEH2015US013585

PATIENT
  Sex: Female
  Weight: 111.6 kg

DRUGS (13)
  1. SAVELLA [Concomitant]
     Active Substance: MILNACIPRAN HYDROCHLORIDE
     Indication: PRODUCT USED FOR UNKNOWN INDICATION
     Route: 065
  2. COPAXONE [Concomitant]
     Active Substance: GLATIRAMER ACETATE
     Indication: PRODUCT USED FOR UNKNOWN INDICATION
     Route: 065
  3. VALACYCLOVIR HCL [Concomitant]
     Active Substance: VALACYCLOVIR HYDROCHLORIDE
     Indication: PRODUCT USED FOR UNKNOWN INDICATION
     Route: 065
  4. TOPIRAMATE. [Concomitant]
     Active Substance: TOPIRAMATE
     Indication: PRODUCT USED FOR UNKNOWN INDICATION
     Route: 065
  5. PRILOSEC [Concomitant]
     Active Substance: OMEPRAZOLE MAGNESIUM
     Indication: PRODUCT USED FOR UNKNOWN INDICATION
     Route: 065
  6. BETASERON [Concomitant]
     Active Substance: INTERFERON BETA-1B
     Indication: PRODUCT USED FOR UNKNOWN INDICATION
     Route: 065
  7. GILENYA [Suspect]
     Active Substance: FINGOLIMOD HYDROCHLORIDE
     Indication: RELAPSING-REMITTING MULTIPLE SCLEROSIS
     Dosage: 0.5 MG, QD
     Route: 048
     Dates: start: 20130612, end: 20131016
  8. LEXAPRO [Concomitant]
     Active Substance: ESCITALOPRAM OXALATE
     Indication: PRODUCT USED FOR UNKNOWN INDICATION
     Route: 065
  9. VISTARIL [Suspect]
     Active Substance: HYDROXYZINE PAMOATE
     Indication: SLEEP DISORDER
     Dosage: 100 MG, FOR SLEEP AT BED TIME
     Route: 065
  10. TRAMADOL HCL [Concomitant]
     Active Substance: TRAMADOL HYDROCHLORIDE
     Indication: PRODUCT USED FOR UNKNOWN INDICATION
     Route: 065
  11. TRAZODONE HYDROCHLORIDE. [Concomitant]
     Active Substance: TRAZODONE HYDROCHLORIDE
     Indication: PRODUCT USED FOR UNKNOWN INDICATION
     Route: 065
  12. FLUOXETINE HCL [Concomitant]
     Active Substance: FLUOXETINE HYDROCHLORIDE
     Indication: PRODUCT USED FOR UNKNOWN INDICATION
     Route: 065
  13. NEXIUM I.V. [Concomitant]
     Active Substance: ESOMEPRAZOLE SODIUM
     Indication: PRODUCT USED FOR UNKNOWN INDICATION
     Route: 065

REACTIONS (35)
  - Lyme disease [Unknown]
  - Tenderness [Unknown]
  - Tendon injury [Unknown]
  - Tinnitus [Not Recovered/Not Resolved]
  - Pain in extremity [Unknown]
  - Dizziness [Unknown]
  - Hypoacusis [Unknown]
  - Fibromyalgia [Unknown]
  - Vertigo [Unknown]
  - Vomiting [Unknown]
  - Balance disorder [Unknown]
  - Speech disorder [Unknown]
  - Presyncope [Recovering/Resolving]
  - Oedema peripheral [Unknown]
  - Migraine [Unknown]
  - Visual acuity reduced [Unknown]
  - Neck pain [Unknown]
  - Ear discomfort [Unknown]
  - Headache [Unknown]
  - Back pain [Unknown]
  - Alopecia [Unknown]
  - Optic neuritis [Unknown]
  - Hypokinesia [Unknown]
  - Arthralgia [Unknown]
  - Hyperhidrosis [Unknown]
  - Photophobia [Unknown]
  - Paraesthesia [Unknown]
  - Fatigue [Unknown]
  - Sinus bradycardia [Unknown]
  - Myelitis transverse [Unknown]
  - Hot flush [Unknown]
  - Weight increased [Unknown]
  - Decreased vibratory sense [Unknown]
  - Urinary retention [Unknown]
  - Nausea [Unknown]
